FAERS Safety Report 13439982 (Version 5)
Quarter: 2018Q3

REPORT INFORMATION
  Report Type: Spontaneous
  Country: US (occurrence: US)
  Receive Date: 20170413
  Receipt Date: 20180821
  Transmission Date: 20181010
  Serious: Yes (Hospitalization, Other)
  Sender: FDA-Public Use
  Company Number: US-009507513-1704USA005935

PATIENT
  Sex: Female
  Weight: 80.73 kg

DRUGS (2)
  1. NUVARING [Suspect]
     Active Substance: ETHINYL ESTRADIOL\ETONOGESTREL
     Indication: CONTRACEPTION
     Dosage: 1 DF, UNKNOWN
     Route: 067
     Dates: start: 20090917, end: 20110607
  2. NUVARING [Suspect]
     Active Substance: ETHINYL ESTRADIOL\ETONOGESTREL
     Dosage: 1 DF, UNK
     Route: 067
     Dates: end: 20140414

REACTIONS (16)
  - Dyspnoea [Unknown]
  - Pulmonary embolism [Unknown]
  - Obesity [Unknown]
  - Pregnancy test positive [Unknown]
  - Maternal exposure before pregnancy [Unknown]
  - Chlamydial infection [Unknown]
  - Palpitations [Unknown]
  - Vulvovaginal candidiasis [Unknown]
  - Pain [Unknown]
  - Dizziness [Unknown]
  - Deep vein thrombosis [Unknown]
  - Pain in extremity [Unknown]
  - Pulmonary embolism [Unknown]
  - Deep vein thrombosis [Unknown]
  - Menorrhagia [Unknown]
  - Dysmenorrhoea [Unknown]

NARRATIVE: CASE EVENT DATE: 20120731
